FAERS Safety Report 18731157 (Version 1)
Quarter: 2021Q1

REPORT INFORMATION
  Report Type: Spontaneous
  Country: FR (occurrence: FR)
  Receive Date: 20210112
  Receipt Date: 20210112
  Transmission Date: 20210419
  Serious: Yes (Hospitalization)
  Sender: FDA-Public Use
  Company Number: FR-TEVA-2021-FR-1867029

PATIENT
  Age: 59 Year
  Sex: Male
  Weight: 74 kg

DRUGS (11)
  1. IMBRUVICA [Suspect]
     Active Substance: IBRUTINIB
     Indication: LYMPHOMA
     Dosage: 4 DOSAGE FORMS
     Route: 048
     Dates: start: 202009, end: 20201202
  2. HOLOXAN [Suspect]
     Active Substance: IFOSFAMIDE
     Indication: B-CELL LYMPHOMA
     Route: 042
     Dates: start: 20201023, end: 20201023
  3. SPECIAFOLDINE [Concomitant]
     Active Substance: FOLIC ACID
  4. CARBOPLATINE [Suspect]
     Active Substance: CARBOPLATIN
     Indication: B-CELL LYMPHOMA
     Route: 042
     Dates: start: 20201023, end: 20201023
  5. ZOLPIDEM [Concomitant]
     Active Substance: ZOLPIDEM TARTRATE
  6. DIFFU K [Concomitant]
     Active Substance: POTASSIUM CHLORIDE
  7. BISOPROLOL (FUMARATE ACIDE DE) [Concomitant]
     Active Substance: BISOPROLOL FUMARATE
  8. FUROSEMIDE. [Concomitant]
     Active Substance: FUROSEMIDE
  9. TRUXIMA [Suspect]
     Active Substance: RITUXIMAB-ABBS
     Indication: B-CELL LYMPHOMA
     Route: 042
     Dates: start: 20201022, end: 20201022
  10. ETOPOPHOS [Suspect]
     Active Substance: ETOPOSIDE PHOSPHATE
     Indication: B-CELL LYMPHOMA
     Route: 042
     Dates: start: 20201022, end: 20201024
  11. CORDARONE [Concomitant]
     Active Substance: AMIODARONE HYDROCHLORIDE

REACTIONS (3)
  - Cardiomyopathy [Recovering/Resolving]
  - Ventricular dysfunction [Recovering/Resolving]
  - Atrial flutter [Recovering/Resolving]

NARRATIVE: CASE EVENT DATE: 202011
